FAERS Safety Report 10879058 (Version 1)
Quarter: 2015Q1

REPORT INFORMATION
  Report Type: Spontaneous
  Country: CA (occurrence: CA)
  Receive Date: 20150302
  Receipt Date: 20150302
  Transmission Date: 20150721
  Serious: Yes (Death, Other)
  Sender: FDA-Public Use
  Company Number: CA-PURDUE PHARMA-CAN-2015-0005580

PATIENT
  Sex: Male

DRUGS (1)
  1. MORPHINE SULFATE. [Suspect]
     Active Substance: MORPHINE SULFATE
     Indication: TUMOUR PAIN
     Dosage: UNK
     Route: 065

REACTIONS (8)
  - Dehydration [None]
  - Cardiac failure congestive [None]
  - Starvation [None]
  - Coma [Unknown]
  - Drug ineffective [Unknown]
  - Pulmonary oedema [None]
  - Euthanasia [Fatal]
  - Overdose [Fatal]
